FAERS Safety Report 4353238-6 (Version None)
Quarter: 2004Q2

REPORT INFORMATION
  Report Type: 
  Country: None (occurrence: None)
  Receive Date: 20040505
  Receipt Date: 20040423
  Transmission Date: 20050107
  Serious: Yes (Hospitalization, Other)
  Sender: FDA-Public Use
  Company Number: PHFR2004GB01869

PATIENT
  Age: 84 Year
  Sex: Female

DRUGS (5)
  1. EXELON [Suspect]
     Dates: start: 20030411
  2. ALBUTEROL SULFATE [Concomitant]
     Dosage: PRN
  3. FLUTICASONE PROPIONATE [Concomitant]
  4. COMBIVENT [Concomitant]
  5. THYROXINE [Concomitant]
     Dosage: 7.5 MG, QD

REACTIONS (6)
  - BLOOD PRESSURE DECREASED [None]
  - CARDIAC MURMUR [None]
  - CHEST PAIN [None]
  - DIZZINESS [None]
  - HYPOTENSION [None]
  - VOMITING [None]
